FAERS Safety Report 21193890 (Version 1)
Quarter: 2022Q3

REPORT INFORMATION
  Report Type: Spontaneous
  Country: US (occurrence: US)
  Receive Date: 20220810
  Receipt Date: 20220810
  Transmission Date: 20221026
  Serious: No
  Sender: FDA-Public Use
  Company Number: US-JNJFOC-20220802465

PATIENT
  Age: 73 Year
  Sex: Male

DRUGS (3)
  1. INVEGA SUSTENNA [Suspect]
     Active Substance: PALIPERIDONE PALMITATE
     Indication: Schizophrenia
     Route: 030
  2. INVEGA SUSTENNA [Suspect]
     Active Substance: PALIPERIDONE PALMITATE
  3. INVEGA SUSTENNA [Suspect]
     Active Substance: PALIPERIDONE PALMITATE

REACTIONS (8)
  - Viral infection [Unknown]
  - Decreased immune responsiveness [Unknown]
  - Dyspnoea [Unknown]
  - Insomnia [Unknown]
  - Hypoaesthesia [Unknown]
  - Arthralgia [Unknown]
  - Rash erythematous [Unknown]
  - Nasopharyngitis [Unknown]
